FAERS Safety Report 24321995 (Version 2)
Quarter: 2024Q3

REPORT INFORMATION
  Report Type: Report from Study
  Country: KR (occurrence: KR)
  Receive Date: 20240916
  Receipt Date: 20240925
  Transmission Date: 20241017
  Serious: Yes (Hospitalization)
  Sender: ROCHE
  Company Number: KR-ROCHE-10000060181

PATIENT
  Age: 60 Year
  Sex: Male
  Weight: 48.7 kg

DRUGS (19)
  1. TRASTUZUMAB [Suspect]
     Active Substance: TRASTUZUMAB
     Indication: Head and neck cancer
     Route: 042
     Dates: start: 20240805, end: 20240805
  2. TRASTUZUMAB [Suspect]
     Active Substance: TRASTUZUMAB
     Route: 042
     Dates: start: 20240826, end: 20240826
  3. PERTUZUMAB [Suspect]
     Active Substance: PERTUZUMAB
     Indication: Head and neck cancer
     Dosage: LAST DOSE PRIOR TO AE 5/AUG/2024
     Route: 042
     Dates: start: 20240805, end: 20240805
  4. PERTUZUMAB [Suspect]
     Active Substance: PERTUZUMAB
     Dosage: LAST DOSE PRIOR TO AE 5/AUG/2024
     Route: 042
     Dates: start: 20240826, end: 20240826
  5. PHENIRAMINE [Concomitant]
     Active Substance: PHENIRAMINE
     Route: 042
     Dates: start: 20240805
  6. DEXA-S [Concomitant]
     Route: 042
     Dates: start: 20240805
  7. DAEWOONGBIO ACETAMINOPHEN [Concomitant]
     Route: 048
     Dates: start: 20240805
  8. FENTADUR [Concomitant]
     Route: 050
     Dates: start: 20240805
  9. ABSTRAL [Concomitant]
     Active Substance: FENTANYL CITRATE
     Route: 060
     Dates: start: 20240805
  10. ACETYLCYSTEINE [Concomitant]
     Active Substance: ACETYLCYSTEINE
     Route: 048
     Dates: start: 20240506
  11. ZANAPAM [Concomitant]
     Route: 048
     Dates: start: 20240709
  12. HEBRON-F [Concomitant]
     Route: 048
     Dates: start: 20230420
  13. BORYUNG MOMETASONE [Concomitant]
     Route: 055
     Dates: start: 20240522
  14. LEVODROPROPIZINE [Concomitant]
     Active Substance: LEVODROPROPIZINE
     Route: 048
     Dates: start: 20240502
  15. GASMOTIN SR [Concomitant]
     Route: 048
     Dates: start: 20240426
  16. YUNGJIN SERTRALINE [Concomitant]
     Route: 048
     Dates: start: 20240709
  17. TRAZODONE HYDROCHLORIDE [Concomitant]
     Active Substance: TRAZODONE HYDROCHLORIDE
     Route: 048
     Dates: start: 20240709
  18. VESICARE [Concomitant]
     Active Substance: SOLIFENACIN SUCCINATE
     Route: 048
     Dates: start: 20240125
  19. ENCOVER [Concomitant]
     Route: 048
     Dates: start: 20240522

REACTIONS (2)
  - Pleural effusion [Recovered/Resolved]
  - Chest pain [Recovering/Resolving]

NARRATIVE: CASE EVENT DATE: 20240815
